FAERS Safety Report 5080560-0 (Version None)
Quarter: 2006Q3

REPORT INFORMATION
  Report Type: 
  Country: None (occurrence: None)
  Receive Date: 20060815
  Receipt Date: 20060812
  Transmission Date: 20061208
  Serious: Yes (Other)
  Sender: FDA-Public Use
  Company Number: US-GLAXOSMITHKLINE-A0616503A

PATIENT
  Age: 62 Year
  Sex: Female

DRUGS (1)
  1. COMMIT [Suspect]
     Indication: EX-SMOKER

REACTIONS (3)
  - AGGRESSION [None]
  - MOOD ALTERED [None]
  - NICOTINE DEPENDENCE [None]
